FAERS Safety Report 20247630 (Version 1)
Quarter: 2021Q4

REPORT INFORMATION
  Report Type: Spontaneous
  Country: US (occurrence: US)
  Receive Date: 20211229
  Receipt Date: 20211229
  Transmission Date: 20220303
  Serious: No
  Sender: FDA-Public Use
  Company Number: US-SA-SAC20211225000691

PATIENT
  Sex: Female

DRUGS (15)
  1. DUPIXENT [Suspect]
     Active Substance: DUPILUMAB
     Indication: Bronchiectasis
     Dosage: 300 MG, QOW
     Route: 058
     Dates: start: 20210121
  2. ADVAIR HFA [Concomitant]
     Active Substance: FLUTICASONE PROPIONATE\SALMETEROL XINAFOATE
  3. TERA [Concomitant]
  4. CALCIUM [Concomitant]
     Active Substance: CALCIUM
  5. CAYSTON [Concomitant]
     Active Substance: AZTREONAM
  6. HIZENTRA [Concomitant]
     Active Substance: HUMAN IMMUNOGLOBULIN G
  7. PREVACID [Concomitant]
     Active Substance: LANSOPRAZOLE
     Indication: Gastrooesophageal reflux disease
     Dosage: 30MG
  8. PREVACID [Concomitant]
     Active Substance: LANSOPRAZOLE
     Indication: Oesophagitis
  9. PROAIR HFA [Concomitant]
     Active Substance: ALBUTEROL SULFATE
     Dosage: 30MG
  10. PULMOZYME [Concomitant]
     Active Substance: DORNASE ALFA
     Dosage: 30MG
  11. QVAR [Concomitant]
     Active Substance: BECLOMETHASONE DIPROPIONATE
     Dosage: 30MG
  12. TOBI PODHALER [Concomitant]
     Active Substance: TOBRAMYCIN
     Dosage: 160MG
  13. VIVAGLOBIN [Concomitant]
     Active Substance: HUMAN IMMUNOGLOBULIN G
     Dosage: 160MG
  14. SINGULAIR [Concomitant]
     Active Substance: MONTELUKAST SODIUM
  15. ZYRTEC [Concomitant]
     Active Substance: CETIRIZINE HYDROCHLORIDE
     Dosage: 160MG

REACTIONS (1)
  - Haemoptysis [Unknown]
